FAERS Safety Report 20764390 (Version 1)
Quarter: 2022Q2

REPORT INFORMATION
  Report Type: Spontaneous
  Country: US (occurrence: US)
  Receive Date: 20220428
  Receipt Date: 20220428
  Transmission Date: 20220721
  Serious: Yes (Death, Other)
  Sender: FDA-Public Use
  Company Number: US-TEVA-2022-US-2030086

PATIENT
  Age: 44 Year
  Sex: Female

DRUGS (6)
  1. DOXORUBICIN [Suspect]
     Active Substance: DOXORUBICIN
     Indication: Post transplant lymphoproliferative disorder
     Dosage: THE PATIENT RECEIVED SIX CYCLES OF R-CHOP REGIMEN
     Route: 065
  2. VINCRISTINE [Suspect]
     Active Substance: VINCRISTINE
     Indication: Post transplant lymphoproliferative disorder
     Dosage: THE PATIENT RECEIVED SIX CYCLES OF R-CHOP REGIMEN
     Route: 065
  3. PREDNISOLONE [Suspect]
     Active Substance: PREDNISOLONE
     Indication: Post transplant lymphoproliferative disorder
     Dosage: THE PATIENT RECEIVED SIX CYCLES OF R-CHOP
     Route: 065
  4. EVEROLIMUS [Suspect]
     Active Substance: EVEROLIMUS
     Indication: Immunosuppressant drug therapy
     Route: 065
  5. RITUXIMAB [Suspect]
     Active Substance: RITUXIMAB
     Indication: Post transplant lymphoproliferative disorder
     Dosage: THE PATIENT RECEIVED SIX CYCLES OF R-CHOP REGIMEN
     Route: 065
  6. CYCLOPHOSPHAMIDE [Suspect]
     Active Substance: CYCLOPHOSPHAMIDE
     Indication: Post transplant lymphoproliferative disorder
     Dosage: THE PATIENT RECEIVED SIX CYCLES OF R-CHOP REGIMEN
     Route: 065

REACTIONS (1)
  - Infection [Fatal]
